FAERS Safety Report 8457503-2 (Version None)
Quarter: 2012Q2

REPORT INFORMATION
  Report Type: 
  Country: None (occurrence: None)
  Receive Date: 20120622
  Receipt Date: 20120608
  Transmission Date: 20120825
  Serious: Yes (Other)
  Sender: FDA-Public Use
  Company Number: TR-AMGEN-TURSP2012037147

PATIENT
  Age: 39 Year
  Sex: Female

DRUGS (1)
  1. ENBREL [Suspect]
     Indication: ANKYLOSING SPONDYLITIS
     Dosage: 25 MG, EVERY TWO WEEKS
     Route: 058
     Dates: start: 20100427

REACTIONS (7)
  - URINARY TRACT INFECTION [None]
  - UTERINE MASS [None]
  - CERVICITIS [None]
  - WEIGHT INCREASED [None]
  - MASS [None]
  - UTERINE HAEMORRHAGE [None]
  - SYNOVIAL CYST [None]
